FAERS Safety Report 25079937 (Version 1)
Quarter: 2025Q1

REPORT INFORMATION
  Report Type: Spontaneous
  Country: FR (occurrence: FR)
  Receive Date: 20250314
  Receipt Date: 20250314
  Transmission Date: 20250409
  Serious: Yes (Other)
  Sender: TEVA
  Company Number: None

PATIENT
  Age: 77 Year
  Sex: Male

DRUGS (2)
  1. LEVOFLOXACIN [Suspect]
     Active Substance: LEVOFLOXACIN
     Indication: Osteitis
     Route: 048
     Dates: start: 20250206
  2. AMOXICILLIN [Suspect]
     Active Substance: AMOXICILLIN
     Indication: Osteitis
     Route: 048
     Dates: start: 20250206

REACTIONS (2)
  - Acute kidney injury [Not Recovered/Not Resolved]
  - Crystalluria [Not Recovered/Not Resolved]

NARRATIVE: CASE EVENT DATE: 20250213
